FAERS Safety Report 8558148-6 (Version None)
Quarter: 2012Q2

REPORT INFORMATION
  Report Type: 
  Country: None (occurrence: None)
  Receive Date: 20120418
  Receipt Date: 20080728
  Transmission Date: 20120825
  Serious: Yes (Other)
  Sender: FDA-Public Use
  Company Number: PHEH2008US06706

PATIENT
  Sex: Female

DRUGS (1)
  1. DIOVAN HCT [Suspect]
     Dosage: 320MG VAL, 25MG HCT, BID
     Dates: start: 20080401

REACTIONS (2)
  - HEADACHE [None]
  - BLOOD PRESSURE DECREASED [None]
